FAERS Safety Report 24238952 (Version 1)
Quarter: 2024Q3

REPORT INFORMATION
  Report Type: Spontaneous
  Country: LB (occurrence: LB)
  Receive Date: 20240822
  Receipt Date: 20240822
  Transmission Date: 20241016
  Serious: Yes (Hospitalization)
  Sender: SANOFI AVENTIS
  Company Number: LB-SA-SAC20240819000866

PATIENT

DRUGS (1)
  1. THYMOGLOBULIN [Suspect]
     Active Substance: LAPINE T-LYMPHOCYTE IMMUNE GLOBULIN
     Dosage: 75 MG (3 VIALS) DAILY
     Route: 065
     Dates: end: 20240727

REACTIONS (4)
  - Injection site phlebitis [Unknown]
  - Injection site pain [Unknown]
  - Injection site inflammation [Unknown]
  - Product preparation error [Unknown]

NARRATIVE: CASE EVENT DATE: 20240727
